FAERS Safety Report 10377786 (Version 3)
Quarter: 2014Q4

REPORT INFORMATION
  Report Type: Spontaneous
  Country: NL (occurrence: NL)
  Receive Date: 20140812
  Receipt Date: 20141015
  Transmission Date: 20150528
  Serious: Yes (Death, Hospitalization)
  Sender: FDA-Public Use
  Company Number: NL-ASTELLAS-2014EU010679

PATIENT
  Age: 67 Year
  Sex: Male

DRUGS (1)
  1. PROGRAFT [Suspect]
     Active Substance: TACROLIMUS
     Indication: PROPHYLAXIS AGAINST TRANSPLANT REJECTION
     Dosage: UNK, UNKNOWN FREQ.
     Route: 065

REACTIONS (4)
  - Venoocclusive disease [Unknown]
  - Hepatic failure [Fatal]
  - Renal cyst [Unknown]
  - Hepatic cyst [Unknown]
